FAERS Safety Report 7559915-8 (Version None)
Quarter: 2011Q2

REPORT INFORMATION
  Report Type: 
  Country: None (occurrence: None)
  Receive Date: 20110621
  Receipt Date: 20110607
  Transmission Date: 20111010
  Serious: Yes (Other)
  Sender: FDA-Public Use
  Company Number: PHHY2011CA50535

PATIENT
  Sex: Female

DRUGS (1)
  1. ZOLEDRONIC ACID [Suspect]
     Indication: OSTEOPOROSIS
     Dates: start: 20100601

REACTIONS (4)
  - DYSPHAGIA [None]
  - CROHN'S DISEASE [None]
  - MALAISE [None]
  - DIZZINESS [None]
